FAERS Safety Report 8973157 (Version 2)
Quarter: 2012Q4

REPORT INFORMATION
  Report Type: 
  Country: JP (occurrence: JP)
  Receive Date: 20121219
  Receipt Date: 20121228
  Transmission Date: 20130627
  Serious: Yes (Other)
  Sender: FDA-Public Use
  Company Number: JP-NAPPMUNDI-GBR-2012-0012233

PATIENT
  Age: 75 Year
  Sex: Female

DRUGS (5)
  1. BUPRENORPHINE TRANSDERMAL SYSTEM 5 MG [Suspect]
     Indication: SCIATICA
     Dosage: 5 mcg, q1h
     Route: 062
     Dates: start: 20121029, end: 20121122
  2. BUPRENORPHINE TRANSDERMAL SYSTEM 5 MG [Suspect]
     Indication: PERIARTHRITIS
  3. CALONAL [Concomitant]
     Dosage: UNK
     Dates: start: 20121122
  4. PRIMPERAN [Concomitant]
     Dosage: UNK
     Dates: start: 20121029, end: 20121122
  5. LOXONIN [Concomitant]
     Route: 061

REACTIONS (3)
  - Fall [Recovered/Resolved]
  - Hand fracture [Not Recovered/Not Resolved]
  - Dizziness [Recovered/Resolved]
